FAERS Safety Report 18303075 (Version 1)
Quarter: 2020Q3

REPORT INFORMATION
  Report Type: Spontaneous
  Country: GB (occurrence: GB)
  Receive Date: 20200924
  Receipt Date: 20200924
  Transmission Date: 20201103
  Serious: Yes (Hospitalization, Disabling, Other)
  Sender: FDA-Public Use
  Company Number: GB-AUROBINDO-AUR-APL-2020-049118

PATIENT
  Age: 14 Year
  Sex: Male
  Weight: 68 kg

DRUGS (3)
  1. CONCERTA [Suspect]
     Active Substance: METHYLPHENIDATE HYDROCHLORIDE
     Indication: ATTENTION DEFICIT HYPERACTIVITY DISORDER
     Dosage: 54 MILLIGRAM, ONCE A DAY
     Route: 048
     Dates: start: 2016, end: 20200828
  2. GUANFACINE HYDROCHLORIDE. [Suspect]
     Active Substance: GUANFACINE HYDROCHLORIDE
     Indication: ATTENTION DEFICIT HYPERACTIVITY DISORDER
     Dosage: 3 MILLIGRAM, ONCE A DAY
     Route: 048
     Dates: start: 2019
  3. SERTRALINE [Suspect]
     Active Substance: SERTRALINE HYDROCHLORIDE
     Indication: DEPRESSION
     Dosage: 125 MILLIGRAM, ONCE A DAY
     Route: 048
     Dates: start: 2016

REACTIONS (5)
  - Blood creatine phosphokinase increased [Unknown]
  - Rhabdomyolysis [Recovering/Resolving]
  - Troponin increased [Unknown]
  - Blood lactate dehydrogenase increased [Unknown]
  - Myositis [Recovering/Resolving]

NARRATIVE: CASE EVENT DATE: 202008
